FAERS Safety Report 15288757 (Version 1)
Quarter: 2018Q3

REPORT INFORMATION
  Report Type: Spontaneous
  Country: US (occurrence: US)
  Receive Date: 20180817
  Receipt Date: 20180817
  Transmission Date: 20181010
  Serious: Yes (Other)
  Sender: FDA-Public Use
  Company Number: US-TOLMAR, INC.-2018US008099

PATIENT

DRUGS (11)
  1. TIZANIDINE. [Concomitant]
     Active Substance: TIZANIDINE
     Indication: BACK PAIN
  2. ELIGARD [Suspect]
     Active Substance: LEUPROLIDE ACETATE
     Dosage: 7.5 MG, 1 MONTH DOSE
     Route: 058
     Dates: start: 201807
  3. ZYTIGA [Concomitant]
     Active Substance: ABIRATERONE ACETATE
     Dosage: 250 MG, 4 TABS DAILY
  4. ELIGARD [Suspect]
     Active Substance: LEUPROLIDE ACETATE
     Indication: PROSTATE CANCER
     Dosage: 7.5 MG, 1 MONTH DOSE
     Route: 058
     Dates: start: 20171130
  5. FLOMAX [Concomitant]
     Active Substance: TAMSULOSIN HYDROCHLORIDE
  6. VITAMIN D                          /00107901/ [Concomitant]
     Active Substance: ERGOCALCIFEROL
  7. GAS RELIEF [Concomitant]
     Active Substance: DIMETHICONE
     Dosage: 125 MG, AS NEEDED
  8. CREON [Concomitant]
     Active Substance: PANCRELIPASE AMYLASE\PANCRELIPASE LIPASE\PANCRELIPASE PROTEASE
     Dosage: 3600 U, BID
  9. PREDNISONE. [Concomitant]
     Active Substance: PREDNISONE
     Dosage: 5 MG, TWICE DAILY
  10. CALCIUM [Concomitant]
     Active Substance: CALCIUM
  11. MOBIC [Concomitant]
     Active Substance: MELOXICAM
     Indication: BACK PAIN
     Dosage: 15 MG, AS NEEDED

REACTIONS (3)
  - Expulsion of medication [Unknown]
  - Metastases to bone [Unknown]
  - Underdose [Unknown]

NARRATIVE: CASE EVENT DATE: 201801
